FAERS Safety Report 12158994 (Version 2)
Quarter: 2016Q2

REPORT INFORMATION
  Report Type: Spontaneous
  Country: US (occurrence: US)
  Receive Date: 20160308
  Receipt Date: 20160415
  Transmission Date: 20160815
  Serious: Yes (Other)
  Sender: FDA-Public Use
  Company Number: US-JNJCP-30000325867

PATIENT
  Sex: Male
  Weight: 86 kg

DRUGS (3)
  1. NEUTROGENA BEACH DEFENSE WATER PLUS SUN PROTECTION SUNSCREEN BROAD SPECTRUM SPF70 [Suspect]
     Active Substance: AVOBENZONE\HOMOSALATE\OCTISALATE\OCTOCRYLENE\OXYBENZONE
     Indication: PROPHYLAXIS
     Dosage: NICKEL SIZE AMOUNT ONCE A DAY
     Route: 061
     Dates: end: 20160223
  2. BLOOD PRESSURE MEDICATION [Concomitant]
     Active Substance: UNSPECIFIED INGREDIENT
     Indication: HYPERTENSION
     Dosage: ONE PER DAY FOR YEARS
  3. INSULIN [Concomitant]
     Active Substance: INSULIN NOS
     Indication: DIABETES MELLITUS
     Dosage: AS NEEDED FOR YEARS

REACTIONS (5)
  - Application site erythema [Recovered/Resolved]
  - Product lot number issue [Unknown]
  - Skin cancer [Recovered/Resolved]
  - Drug ineffective [Unknown]
  - Product expiration date issue [Unknown]
